FAERS Safety Report 24063640 (Version 1)
Quarter: 2024Q3

REPORT INFORMATION
  Report Type: Spontaneous
  Country: US (occurrence: US)
  Receive Date: 20240709
  Receipt Date: 20240709
  Transmission Date: 20241017
  Serious: Yes (Death, Other)
  Sender: Steriscience PTE
  Company Number: US-STERISCIENCE B.V.-2024-ST-000964

PATIENT
  Age: 57 Year
  Sex: Male

DRUGS (5)
  1. MIDAZOLAM [Suspect]
     Active Substance: MIDAZOLAM
     Indication: Rabies
     Dosage: UNK
     Route: 065
  2. AMANTADINE [Suspect]
     Active Substance: AMANTADINE
     Indication: Rabies
     Dosage: UNK
     Route: 065
  3. KETAMINE [Suspect]
     Active Substance: KETAMINE
     Indication: Rabies
     Dosage: UNK
     Route: 065
  4. FAVIPIRAVIR [Suspect]
     Active Substance: FAVIPIRAVIR
     Indication: Rabies
     Dosage: ON DAY 9
     Route: 065
  5. RABIES VACCINE [Suspect]
     Active Substance: RABIES VACCINE
     Indication: Rabies
     Dosage: ON DAY 11
     Route: 065

REACTIONS (1)
  - Drug ineffective for unapproved indication [Fatal]
